FAERS Safety Report 8304252-7 (Version None)
Quarter: 2012Q2

REPORT INFORMATION
  Report Type: 
  Country: None (occurrence: None)
  Receive Date: 20120423
  Receipt Date: 20120417
  Transmission Date: 20120825
  Serious: Yes (Other)
  Sender: FDA-Public Use
  Company Number: PHEH2012US008274

PATIENT
  Age: 86 Year
  Sex: Male

DRUGS (4)
  1. CALCIUM CARBONATE [Suspect]
     Indication: DYSPEPSIA
     Dosage: UNK
  2. DIOVAN [Suspect]
     Indication: CARDIAC DISORDER
     Dosage: UNK DF, QD
     Route: 048
  3. CALCIUM CARBONATE [Suspect]
     Indication: GASTRITIS
  4. PLAVIX [Suspect]
     Indication: ANTICOAGULANT THERAPY
     Dosage: UNK U, QD
     Route: 048

REACTIONS (4)
  - IMPAIRED HEALING [None]
  - HAEMORRHAGIC DIATHESIS [None]
  - HAEMORRHAGE [None]
  - DRUG INTERACTION [None]
